FAERS Safety Report 15254942 (Version 1)
Quarter: 2018Q3

REPORT INFORMATION
  Report Type: Spontaneous
  Country: US (occurrence: US)
  Receive Date: 20180808
  Receipt Date: 20180808
  Transmission Date: 20181010
  Serious: No
  Sender: FDA-Public Use
  Company Number: US-MYLANLABS-2018M1057232

PATIENT
  Age: 78 Year
  Sex: Male

DRUGS (2)
  1. FENTANYL. [Suspect]
     Active Substance: FENTANYL
     Dosage: UNK UNK, Q3D (PATIENT CUTS PATCHES IN HALF)
  2. FENTANYL. [Suspect]
     Active Substance: FENTANYL
     Indication: PAIN
     Dosage: 50 ?G, Q3D
     Route: 062
     Dates: start: 20180704

REACTIONS (2)
  - Fatigue [Recovered/Resolved]
  - Wrong technique in product usage process [Not Recovered/Not Resolved]
